FAERS Safety Report 8166881-3 (Version None)
Quarter: 2012Q1

REPORT INFORMATION
  Report Type: 
  Country: None (occurrence: None)
  Receive Date: 20120103
  Receipt Date: 20111021
  Transmission Date: 20120608
  Serious: No
  Sender: FDA-Public Use
  Company Number: AE-2011-002563

PATIENT
  Age: 55 Year
  Sex: Female
  Weight: 61.2356 kg

DRUGS (8)
  1. INCIVEK [Suspect]
     Dosage: 2250 MG (750 MG, 3 IN 1 D), ORAL
     Route: 048
     Dates: start: 20111003
  2. MULTIVITAMIN (MULTIVITAMIN ^LAPPE^) [Concomitant]
  3. CALCIUM CARBONATE [Concomitant]
  4. PEGASYS [Concomitant]
  5. ASPIRIN [Concomitant]
  6. VALTREX [Concomitant]
  7. VITAMIN E [Concomitant]
  8. RIBAVIRIN [Concomitant]

REACTIONS (3)
  - GINGIVAL BLEEDING [None]
  - TOOTHACHE [None]
  - GINGIVAL SWELLING [None]
